FAERS Safety Report 9719193 (Version 1)
Quarter: 2013Q4

REPORT INFORMATION
  Report Type: Spontaneous
  Country: US (occurrence: US)
  Receive Date: 20131127
  Receipt Date: 20131127
  Transmission Date: 20140711
  Serious: Yes (Hospitalization, Other)
  Sender: FDA-Public Use
  Company Number: GXBR2013US002039

PATIENT
  Age: 63 Year
  Sex: Male
  Weight: 131.52 kg

DRUGS (1)
  1. AZITHROMYCIN 250 MG [Suspect]
     Indication: NASOPHARYNGITIS
     Dosage: UNK DF, UNK
     Dates: start: 201206

REACTIONS (2)
  - Myocardial infarction [Recovered/Resolved]
  - Cardiac failure [Recovering/Resolving]
